FAERS Safety Report 21127557 (Version 2)
Quarter: 2022Q3

REPORT INFORMATION
  Report Type: Report from Study
  Country: US (occurrence: US)
  Receive Date: 20220725
  Receipt Date: 20220909
  Transmission Date: 20221026
  Serious: Yes (Hospitalization, Other)
  Sender: FDA-Public Use
  Company Number: US-BRISTOL-MYERS SQUIBB COMPANY-2022-073221

PATIENT
  Age: 74 Year
  Sex: Female
  Weight: 72.575 kg

DRUGS (1)
  1. REVLIMID [Suspect]
     Active Substance: LENALIDOMIDE
     Indication: Plasma cell myeloma
     Dosage: 28/BTL?1 CAPSULE DAILY ON 21 OF 28 DAYS
     Route: 048
     Dates: start: 201901

REACTIONS (4)
  - Cataract [Unknown]
  - Thrombosis [Unknown]
  - Haemorrhoids [Unknown]
  - Anaemia [Unknown]

NARRATIVE: CASE EVENT DATE: 20220101
